FAERS Safety Report 5444985-3 (Version None)
Quarter: 2007Q3

REPORT INFORMATION
  Report Type: 
  Country: None (occurrence: None)
  Receive Date: 20070904
  Receipt Date: 20070904
  Transmission Date: 20080115
  Serious: No
  Sender: FDA-Public Use
  Company Number: None

PATIENT
  Age: 50 Year
  Sex: Male
  Weight: 176.4492 kg

DRUGS (14)
  1. CHANTIX [Suspect]
     Indication: SMOKING CESSATION THERAPY
     Dosage: 0.5MG QD PO
     Route: 048
     Dates: start: 20070810, end: 20070811
  2. MULTI-VITAMIN [Concomitant]
  3. TOPROL-XL [Concomitant]
  4. POTASSIUM CHLORIDE SR - K-DUR- [Concomitant]
  5. CITALOPRAM [Concomitant]
  6. NIASPAN [Concomitant]
  7. ASPIRIN [Concomitant]
  8. METFORMIN [Concomitant]
  9. LISINOPRIL [Concomitant]
  10. NAPROXEN [Concomitant]
  11. ZONISAMIDE [Concomitant]
  12. OMEPRAZOLE [Concomitant]
  13. GLIPIZIDE SR [Concomitant]
  14. LANTUS [Concomitant]

REACTIONS (4)
  - BLOOD GLUCOSE INCREASED [None]
  - DIZZINESS [None]
  - GAIT DISTURBANCE [None]
  - HAEMATOCHEZIA [None]
